FAERS Safety Report 5272964-8 (Version None)
Quarter: 2007Q1

REPORT INFORMATION
  Report Type: 
  Country: None (occurrence: None)
  Receive Date: 20061214
  Receipt Date: 20060818
  Transmission Date: 20070707
  Serious: Yes (Hospitalization, Other)
  Sender: FDA-Public Use
  Company Number: 2006105595

PATIENT
  Age: 36 Year
  Sex: Male
  Weight: 81.6475 kg

DRUGS (2)
  1. BEXTRA [Suspect]
     Indication: JOINT INJURY
     Dosage: 20 MG (10 MG, 2 IN 1 D)
     Dates: start: 20040501, end: 20041001
  2. BEXTRA [Suspect]
     Indication: NECK INJURY
     Dosage: 20 MG (10 MG, 2 IN 1 D)
     Dates: start: 20040501, end: 20041001

REACTIONS (1)
  - MYOCARDIAL INFARCTION [None]
